FAERS Safety Report 13583416 (Version 2)
Quarter: 2017Q2

REPORT INFORMATION
  Report Type: Report from Study
  Country: FR (occurrence: FR)
  Receive Date: 20170526
  Receipt Date: 20170602
  Transmission Date: 20170830
  Serious: Yes (Hospitalization)
  Sender: FDA-Public Use
  Company Number: FR-ROCHE-1939196

PATIENT
  Age: 12 Year
  Sex: Female

DRUGS (2)
  1. SOMATROPIN [Suspect]
     Active Substance: SOMATROPIN
     Indication: GROWTH HORMONE DEFICIENCY
     Dosage: 10 MG / 2 ML
     Route: 058
     Dates: start: 201512
  2. SOMATROPIN [Suspect]
     Active Substance: SOMATROPIN
     Indication: GROWTH FAILURE
     Dosage: 10 MG / 2 ML
     Route: 058
     Dates: start: 20150903, end: 201512

REACTIONS (2)
  - Injection site pain [Recovered/Resolved]
  - Teratoma [Recovered/Resolved]

NARRATIVE: CASE EVENT DATE: 20160408
